FAERS Safety Report 24980145 (Version 2)
Quarter: 2025Q1

REPORT INFORMATION
  Report Type: Spontaneous
  Country: BR (occurrence: BR)
  Receive Date: 20250218
  Receipt Date: 20250225
  Transmission Date: 20250409
  Serious: Yes (Other)
  Sender: GLAXOSMITHKLINE
  Company Number: BR-GLAXOSMITHKLINE INC-BR2025017588

PATIENT

DRUGS (9)
  1. NUCALA [Suspect]
     Active Substance: MEPOLIZUMAB
     Indication: Asthma
     Dosage: 100 MG, MO
  2. NUCALA [Suspect]
     Active Substance: MEPOLIZUMAB
     Indication: Chronic obstructive pulmonary disease
  3. CELEBRA [Suspect]
     Active Substance: CELECOXIB
     Indication: Product used for unknown indication
  4. IVERMECTIN [Suspect]
     Active Substance: IVERMECTIN
     Indication: Product used for unknown indication
  5. IVERMECTIN [Suspect]
     Active Substance: IVERMECTIN
  6. ALBENDAZOLE [Suspect]
     Active Substance: ALBENDAZOLE
     Indication: Product used for unknown indication
  7. NITAZOXANIDE [Suspect]
     Active Substance: NITAZOXANIDE
     Indication: Product used for unknown indication
  8. Alenia [Concomitant]
     Indication: Product used for unknown indication
     Dosage: 6/200 - EVERY 12 HOURS, BID
  9. FLUTICASONE FUROATE [Concomitant]
     Active Substance: FLUTICASONE FUROATE
     Indication: Product used for unknown indication

REACTIONS (5)
  - Hepatotoxicity [Recovered/Resolved]
  - Dermatitis [Recovered/Resolved]
  - Bronchospasm [Recovered/Resolved]
  - Illness anxiety disorder [Recovered/Resolved]
  - Product use in unapproved indication [Unknown]
